FAERS Safety Report 15413235 (Version 1)
Quarter: 2018Q3

REPORT INFORMATION
  Report Type: Spontaneous
  Country: DE (occurrence: DE)
  Receive Date: 20180921
  Receipt Date: 20180921
  Transmission Date: 20181010
  Serious: Yes (Death, Other)
  Sender: FDA-Public Use
  Company Number: DE-CELGENEUS-DEU-20180903741

PATIENT
  Age: 65 Year
  Sex: Male

DRUGS (4)
  1. BEXAROTENE. [Concomitant]
     Active Substance: BEXAROTENE
     Indication: CHRONIC MYELOMONOCYTIC LEUKAEMIA
     Route: 065
  2. AZACITIDINE. [Suspect]
     Active Substance: AZACITIDINE
     Indication: CHRONIC MYELOMONOCYTIC LEUKAEMIA
     Route: 041
  3. AZACITIDINE. [Suspect]
     Active Substance: AZACITIDINE
     Route: 041
  4. CYTARABINE. [Concomitant]
     Active Substance: CYTARABINE
     Indication: CHRONIC MYELOMONOCYTIC LEUKAEMIA
     Route: 065

REACTIONS (2)
  - Thrombocytopenia [Recovering/Resolving]
  - Transformation to acute myeloid leukaemia [Fatal]
